FAERS Safety Report 8579233-9 (Version None)
Quarter: 2012Q3

REPORT INFORMATION
  Report Type: 
  Country: None (occurrence: None)
  Receive Date: 20120808
  Receipt Date: 20120606
  Transmission Date: 20120928
  Serious: Yes (Death)
  Sender: FDA-Public Use
  Company Number: FR-ROCHE-1096252

PATIENT
  Sex: Female

DRUGS (4)
  1. FLUOROURACIL [Concomitant]
     Dates: start: 20081223, end: 20090401
  2. OXALIPLATIN [Concomitant]
     Dates: start: 20081223, end: 20090401
  3. AVASTIN [Suspect]
     Indication: COLON CANCER
     Dates: start: 20081223, end: 20090401
  4. LEUCOVORIN CALCIUM [Concomitant]
     Dates: start: 20081223, end: 20090401

REACTIONS (5)
  - ASTHENIA [None]
  - INSOMNIA [None]
  - JAUNDICE [None]
  - DISORIENTATION [None]
  - DEATH [None]
